FAERS Safety Report 7753624-8 (Version None)
Quarter: 2011Q3

REPORT INFORMATION
  Report Type: 
  Country: None (occurrence: None)
  Receive Date: 20110915
  Receipt Date: 20110324
  Transmission Date: 20111222
  Serious: Yes (Other)
  Sender: FDA-Public Use
  Company Number: ZA-GLAXOSMITHKLINE-B0709415A

PATIENT
  Sex: Male

DRUGS (1)
  1. ZYBAN [Suspect]
     Indication: EX-TOBACCO USER
     Route: 065
     Dates: start: 20110101, end: 20110118

REACTIONS (5)
  - BACK PAIN [None]
  - ABDOMINAL PAIN [None]
  - INSOMNIA [None]
  - PALPITATIONS [None]
  - TREMOR [None]
